FAERS Safety Report 13603304 (Version 2)
Quarter: 2017Q2

REPORT INFORMATION
  Report Type: Spontaneous
  Country: US (occurrence: US)
  Receive Date: 20170601
  Receipt Date: 20170607
  Transmission Date: 20170830
  Serious: Yes (Other)
  Sender: FDA-Public Use
  Company Number: US-PFIZER INC-2017234310

PATIENT
  Sex: Female
  Weight: 1.7 kg

DRUGS (2)
  1. ALPROSTADIL. [Suspect]
     Active Substance: ALPROSTADIL
     Dosage: APPROXIMATELY 0.007 MCG/KG/MINUTE
     Route: 042
  2. ALPROSTADIL. [Suspect]
     Active Substance: ALPROSTADIL
     Indication: PATENT DUCTUS ARTERIOSUS
     Dosage: 0.05 MCG/KG/MIN
     Route: 042

REACTIONS (1)
  - Atrioventricular block [Recovered/Resolved]
